FAERS Safety Report 4663479-6 (Version None)
Quarter: 2005Q2

REPORT INFORMATION
  Report Type: 
  Country: None (occurrence: None)
  Receive Date: 20050513
  Receipt Date: 20050503
  Transmission Date: 20051028
  Serious: Yes (Hospitalization)
  Sender: FDA-Public Use
  Company Number: MEDI-0003311

PATIENT
  Age: 57 Year
  Sex: Male

DRUGS (5)
  1. ETHYOL [Suspect]
     Indication: CHEMOTHERAPY
     Dosage: INTRAVENOUS
     Route: 042
  2. OXALIPLATIN (OXALIPLATIN) [Concomitant]
  3. 5-FU (FUOROURACIL) [Concomitant]
  4. LEUCOVORIN CALCIUM [Concomitant]
  5. DECADRON SRC [Concomitant]

REACTIONS (4)
  - HYPOAESTHESIA [None]
  - PHARYNGOLARYNGEAL PAIN [None]
  - PRURITUS [None]
  - SKIN LESION [None]
